FAERS Safety Report 13031763 (Version 1)
Quarter: 2016Q4

REPORT INFORMATION
  Report Type: Report from Study
  Country: US (occurrence: US)
  Receive Date: 20161215
  Receipt Date: 20161215
  Transmission Date: 20170207
  Serious: Yes (Hospitalization)
  Sender: FDA-Public Use
  Company Number: PHEH2016US032418

PATIENT
  Age: 69 Year

DRUGS (1)
  1. AFINITOR [Suspect]
     Active Substance: EVEROLIMUS
     Indication: PRODUCT USED FOR UNKNOWN INDICATION
     Dosage: 10 MG/KG, QD
     Route: 048
     Dates: start: 20161116, end: 20161123

REACTIONS (1)
  - Skin lesion [Recovering/Resolving]

NARRATIVE: CASE EVENT DATE: 20161116
